FAERS Safety Report 7348933-0 (Version None)
Quarter: 2011Q1

REPORT INFORMATION
  Report Type: 
  Country: None (occurrence: None)
  Receive Date: 20110314
  Receipt Date: 20100608
  Transmission Date: 20110831
  Serious: Yes (Other)
  Sender: FDA-Public Use
  Company Number: GB-EISAI INC-E7389-00442-CLI-GB

PATIENT
  Sex: Female
  Weight: 64 kg

DRUGS (31)
  1. FLUCONAZOLE [Concomitant]
     Route: 048
     Dates: start: 20080601, end: 20080604
  2. CHLORHEXIDINE GLUCONATE [Concomitant]
     Indication: STOMATITIS
     Route: 048
     Dates: start: 20080604
  3. LOPERAMIDE [Concomitant]
     Route: 048
     Dates: start: 20080606
  4. CALCITONIN [Concomitant]
     Route: 058
     Dates: start: 20080523, end: 20080526
  5. FRAGMIN [Concomitant]
     Route: 058
     Dates: start: 20080531, end: 20080531
  6. MOVIPREP [Concomitant]
     Indication: CONSTIPATION
     Dosage: 2 SACHET
     Route: 048
     Dates: start: 20080520
  7. LANSOPRAZOLE [Concomitant]
     Indication: REFLUX GASTRITIS
     Route: 048
  8. ZOPICOLONE [Concomitant]
     Indication: INSOMNIA
     Route: 048
  9. ZOLEDRONIC ACID [Concomitant]
     Indication: HYPERCALCAEMIA
     Route: 041
     Dates: start: 20080519, end: 20080519
  10. LIDOCAINE [Concomitant]
     Route: 058
     Dates: start: 20080514, end: 20080514
  11. HALOPERIDOL [Concomitant]
     Indication: SEDATION
     Route: 058
     Dates: start: 20080601
  12. PROPRANOLOL [Concomitant]
     Route: 048
     Dates: start: 20080601
  13. SENNA [Concomitant]
     Indication: CONSTIPATION
     Dosage: 2 SACHETS
     Route: 048
     Dates: start: 20080520
  14. MAGNESIUM GLYCEROPHOSPAHTE [Concomitant]
     Indication: HYPOMAGNESAEMIA
     Route: 048
  15. CALCITONIN [Concomitant]
     Indication: HYPERCALCAEMIA
     Route: 058
     Dates: start: 20080527
  16. E7389 (BOLD) [Suspect]
     Route: 041
     Dates: end: 20080805
  17. ANUSOL CREAM [Concomitant]
     Indication: HAEMORRHOIDS
     Dosage: 2 APPLICATIONS
     Dates: start: 20080601
  18. PARACETAMOL [Concomitant]
     Indication: ABDOMINAL PAIN
     Route: 048
  19. ONDANSETRON [Concomitant]
     Indication: ANTIEMETIC SUPPORTIVE CARE
     Route: 048
     Dates: start: 20080520, end: 20080521
  20. DOMPERIDONE [Concomitant]
     Indication: ANTIEMETIC SUPPORTIVE CARE
     Route: 048
     Dates: start: 20080520
  21. DIFFLAM [Concomitant]
     Indication: STOMATITIS
     Route: 048
     Dates: start: 20080601
  22. FRAGMIN [Concomitant]
     Indication: PROPHYLAXIS
     Route: 058
     Dates: start: 20080604, end: 20080609
  23. PHOSPHATE ENEMA [Concomitant]
     Indication: CONSTIPATION
     Dosage: 1
     Dates: start: 20080602, end: 20080602
  24. FLUCONAZOLE [Concomitant]
     Indication: STOMATITIS
     Route: 048
     Dates: start: 20080604, end: 20080613
  25. GEL CLAIR [Concomitant]
     Indication: STOMATITIS
     Dosage: 3 APPLICATIONS
     Route: 048
     Dates: start: 20080604
  26. POTASSIUM [Concomitant]
     Indication: HYPOKALAEMIA
     Route: 042
     Dates: start: 20080531, end: 20080608
  27. ZOLEDRONIC ACID [Concomitant]
     Route: 041
     Dates: start: 20080514, end: 20080514
  28. TAZOCIN [Concomitant]
     Indication: NEUTROPENIC SEPSIS
     Route: 041
     Dates: start: 20080531
  29. LACTULOSE [Concomitant]
     Indication: CONSTIPATION
     Route: 048
     Dates: start: 20080601
  30. ARACHIS OIL ENEMA [Concomitant]
     Indication: CONSTIPATION
     Dosage: 1
     Dates: start: 20080601, end: 20080601
  31. MAGNESIUM [Concomitant]
     Indication: HYPOMAGNESAEMIA
     Route: 042
     Dates: start: 20080531, end: 20080531

REACTIONS (1)
  - NEUTROPENIC SEPSIS [None]
